FAERS Safety Report 16980348 (Version 1)
Quarter: 2019Q4

REPORT INFORMATION
  Report Type: Spontaneous
  Country: CA (occurrence: CA)
  Receive Date: 20191031
  Receipt Date: 20191031
  Transmission Date: 20200122
  Serious: Yes (Hospitalization, Other)
  Sender: FDA-Public Use
  Company Number: CA-TEVA-2019-CA-1128275

PATIENT
  Age: 22 Year
  Sex: Male
  Weight: 50 kg

DRUGS (1)
  1. CIPROFLOXACIN. [Suspect]
     Active Substance: CIPROFLOXACIN
     Indication: URINARY TRACT INFECTION
     Dosage: 1000 MILLIGRAM DAILY;
     Route: 048

REACTIONS (6)
  - Liver injury [Recovering/Resolving]
  - Pyrexia [Recovering/Resolving]
  - Abdominal pain upper [Recovering/Resolving]
  - Discomfort [Recovering/Resolving]
  - Vomiting [Recovering/Resolving]
  - Nausea [Recovering/Resolving]
